FAERS Safety Report 25950765 (Version 1)
Quarter: 2025Q4

REPORT INFORMATION
  Report Type: Spontaneous
  Country: US (occurrence: US)
  Receive Date: 20251023
  Receipt Date: 20251023
  Transmission Date: 20260118
  Serious: Yes (Other)
  Sender: UNILEVER
  Company Number: US-Unilever-2187109

PATIENT
  Sex: Female

DRUGS (1)
  1. DOVE (ALUMINUM SESQUICHLOROHYDRATE) [Suspect]
     Active Substance: ALUMINUM SESQUICHLOROHYDRATE

REACTIONS (6)
  - Burning sensation [Unknown]
  - Application site pruritus [Not Recovered/Not Resolved]
  - Application site erythema [Not Recovered/Not Resolved]
  - Application site pain [Not Recovered/Not Resolved]
  - Blister [Recovered/Resolved]
  - Thermal burn [Recovered/Resolved]
